FAERS Safety Report 13196799 (Version 2)
Quarter: 2017Q1

REPORT INFORMATION
  Report Type: Report from Study
  Country: CA (occurrence: CA)
  Receive Date: 20170208
  Receipt Date: 20170327
  Transmission Date: 20170428
  Serious: Yes (Other)
  Sender: FDA-Public Use
  Company Number: CA-GLAXOSMITHKLINE-CA2016GSK103839

PATIENT
  Age: 57 Year
  Sex: Female

DRUGS (7)
  1. XOLAIR [Suspect]
     Active Substance: OMALIZUMAB
     Dosage: UNK
     Route: 058
     Dates: start: 20170222
  2. XOLAIR [Suspect]
     Active Substance: OMALIZUMAB
     Dosage: UNK
     Route: 058
     Dates: start: 20161005
  3. DICLOFENAC DIETHYLAMMONIUM SALT [Suspect]
     Active Substance: DICLOFENAC DIETHYLAMINE
     Indication: PRODUCT USED FOR UNKNOWN INDICATION
     Dosage: UNK
     Dates: start: 20160223
  4. XOLAIR [Suspect]
     Active Substance: OMALIZUMAB
     Indication: CHRONIC SPONTANEOUS URTICARIA
     Dosage: 300 MG, Q4 WEEK
     Route: 058
     Dates: start: 20160712
  5. XOLAIR [Suspect]
     Active Substance: OMALIZUMAB
     Dosage: UNK
     Route: 058
     Dates: start: 20161229
  6. REACTINE (CETIRIZINA AND PSEUDOEFEDRINA) [Concomitant]
     Dosage: 20 MG, UNK
  7. XOLAIR [Suspect]
     Active Substance: OMALIZUMAB
     Dosage: UNK
     Route: 058
     Dates: start: 20160811

REACTIONS (11)
  - Palpitations [Recovered/Resolved]
  - Adnexa uteri pain [Unknown]
  - Pneumonia [Unknown]
  - Infected skin ulcer [Unknown]
  - Blood pressure systolic increased [Unknown]
  - Urticaria [Unknown]
  - Nasal congestion [Recovered/Resolved]
  - Musculoskeletal pain [Unknown]
  - Hormone level abnormal [Recovered/Resolved]
  - Postmenopausal haemorrhage [Recovered/Resolved]
  - Papilloma [Unknown]

NARRATIVE: CASE EVENT DATE: 20160712
